FAERS Safety Report 16799614 (Version 1)
Quarter: 2019Q3

REPORT INFORMATION
  Report Type: Spontaneous
  Country: GB (occurrence: FR)
  Receive Date: 20190912
  Receipt Date: 20190912
  Transmission Date: 20191005
  Serious: Yes (Hospitalization, Other)
  Sender: FDA-Public Use
  Company Number: FR-BAYER-2018-235000

PATIENT
  Age: 38 Year
  Sex: Female
  Weight: 65 kg

DRUGS (4)
  1. YAZ [Suspect]
     Active Substance: DROSPIRENONE\ETHINYL ESTRADIOL
     Indication: CONTRACEPTION
     Dosage: 1 DF, UNK
     Route: 048
  2. MEDIATOR [Concomitant]
     Active Substance: BENFLUOREX
     Indication: PRODUCT USED FOR UNKNOWN INDICATION
     Route: 048
  3. MEDIATOR [Concomitant]
     Active Substance: BENFLUOREX
     Indication: PRODUCT USED FOR UNKNOWN INDICATION
     Route: 048
  4. ANDROCUR [Suspect]
     Active Substance: CYPROTERONE ACETATE
     Indication: POLYCYSTIC OVARIES
     Dosage: 21 DF, UNK
     Route: 048
     Dates: end: 20180507

REACTIONS (5)
  - Fatigue [Not Recovered/Not Resolved]
  - Meningioma [Unknown]
  - Dizziness [Unknown]
  - Visual impairment [Not Recovered/Not Resolved]
  - Headache [Recovered/Resolved]

NARRATIVE: CASE EVENT DATE: 2017
